FAERS Safety Report 23065035 (Version 2)
Quarter: 2023Q4

REPORT INFORMATION
  Report Type: Spontaneous
  Country: US (occurrence: US)
  Receive Date: 20231013
  Receipt Date: 20231023
  Transmission Date: 20240110
  Serious: No
  Sender: FDA-Public Use
  Company Number: US-PFIZER INC-202300318372

PATIENT
  Sex: Female

DRUGS (1)
  1. MENEST [Suspect]
     Active Substance: ESTROGENS, ESTERIFIED
     Dosage: 0.625 MG

REACTIONS (2)
  - Insomnia [Unknown]
  - Hot flush [Unknown]
